FAERS Safety Report 23520097 (Version 1)
Quarter: 2024Q1

REPORT INFORMATION
  Report Type: Spontaneous
  Country: US (occurrence: US)
  Receive Date: 20240214
  Receipt Date: 20240214
  Transmission Date: 20240409
  Serious: Yes (Hospitalization, Other)
  Sender: FDA-Public Use
  Company Number: US-AJANTA-2024AJA00021

PATIENT
  Age: 20 Year
  Sex: Male

DRUGS (18)
  1. DIVALPROEX SODIUM [Suspect]
     Active Substance: DIVALPROEX SODIUM
     Indication: Bipolar I disorder
     Dosage: DELAYED RELEASE
     Route: 048
  2. DIVALPROEX SODIUM [Suspect]
     Active Substance: DIVALPROEX SODIUM
     Indication: Mania
     Dosage: DELAYED RELEASE
     Route: 048
  3. RISPERIDONE [Suspect]
     Active Substance: RISPERIDONE
     Indication: Bipolar I disorder
     Route: 048
  4. RISPERIDONE [Suspect]
     Active Substance: RISPERIDONE
     Indication: Mania
     Route: 048
  5. RISPERIDONE [Suspect]
     Active Substance: RISPERIDONE
     Dosage: LOADING DOSE
     Route: 048
  6. PALIPERIDONE PALMITATE [Suspect]
     Active Substance: PALIPERIDONE PALMITATE
     Indication: Bipolar I disorder
     Route: 048
  7. PALIPERIDONE PALMITATE [Suspect]
     Active Substance: PALIPERIDONE PALMITATE
     Indication: Mania
     Route: 048
  8. PALIPERIDONE PALMITATE [Suspect]
     Active Substance: PALIPERIDONE PALMITATE
     Route: 030
  9. BENZTROPINE [Concomitant]
     Active Substance: BENZTROPINE
  10. BENZTROPINE [Concomitant]
     Active Substance: BENZTROPINE
  11. HALOPERIDOL [Concomitant]
     Active Substance: HALOPERIDOL
     Indication: Aggression
     Route: 048
  12. HALOPERIDOL [Concomitant]
     Active Substance: HALOPERIDOL
     Route: 030
  13. OLANZAPINE [Concomitant]
     Active Substance: OLANZAPINE
     Indication: Aggression
     Route: 048
  14. OLANZAPINE [Concomitant]
     Active Substance: OLANZAPINE
     Route: 030
  15. LORAZEPAM [Concomitant]
     Active Substance: LORAZEPAM
     Indication: Aggression
     Route: 048
  16. LORAZEPAM [Concomitant]
     Active Substance: LORAZEPAM
     Route: 030
  17. DIPHENHYDRAMINE [Concomitant]
     Active Substance: DIPHENHYDRAMINE
     Indication: Aggression
     Route: 030
  18. DIPHENHYDRAMINE [Concomitant]
     Active Substance: DIPHENHYDRAMINE
     Route: 048

REACTIONS (2)
  - Hyperammonaemic encephalopathy [Recovering/Resolving]
  - Drug interaction [Recovering/Resolving]
